FAERS Safety Report 11753981 (Version 1)
Quarter: 2015Q4

REPORT INFORMATION
  Report Type: Spontaneous
  Country: US (occurrence: US)
  Receive Date: 20151119
  Receipt Date: 20151119
  Transmission Date: 20160304
  Serious: No
  Sender: FDA-Public Use
  Company Number: US-BAYER-2015-466834

PATIENT
  Age: 61 Year
  Sex: Female
  Weight: 66.21 kg

DRUGS (5)
  1. MIRALAX [Suspect]
     Active Substance: POLYETHYLENE GLYCOL 3350
     Indication: ANALGESIC THERAPY
     Dosage: 1 DF, QD
     Route: 048
     Dates: end: 20151031
  2. TYLENOL [Concomitant]
     Active Substance: ACETAMINOPHEN
  3. ZANTAC [Concomitant]
     Active Substance: RANITIDINE HYDROCHLORIDE
     Indication: ABDOMINAL DISTENSION
  4. ARMOUR THYROID [Concomitant]
     Active Substance: THYROID, PORCINE\THYROID, UNSPECIFIED
  5. ZANTAC [Concomitant]
     Active Substance: RANITIDINE HYDROCHLORIDE
     Indication: NAUSEA

REACTIONS (10)
  - Abdominal distension [None]
  - Abdominal distension [None]
  - Thirst [None]
  - Gait disturbance [None]
  - Dry mouth [None]
  - Arthralgia [Recovered/Resolved]
  - Back pain [None]
  - Nausea [None]
  - Product use issue [None]
  - Gastrointestinal pain [None]

NARRATIVE: CASE EVENT DATE: 20151001
